FAERS Safety Report 8083562 (Version 7)
Quarter: 2013Q4

REPORT INFORMATION
  Report Type: Report from Study
  Country: IT (occurrence: IT)
  Receive Date: 20110810
  Receipt Date: 20131128
  Transmission Date: 20140711
  Serious: Yes (Other)
  Sender: FDA-Public Use
  Company Number: IT-CELGENEUS-083-21880-11080672

PATIENT
  Age: 69 Year
  Sex: Male

DRUGS (14)
  1. REVLIMID [Suspect]
     Indication: PLASMA CELL MYELOMA
     Dosage: 10 MILLIGRAM
     Route: 048
     Dates: start: 20090426, end: 20101027
  2. SELEPARINA [Concomitant]
     Indication: PRODUCT USED FOR UNKNOWN INDICATION
     Dosage: 1.6 DOSAGE FORMS
     Route: 065
  3. DUROGESIC [Concomitant]
     Indication: PRODUCT USED FOR UNKNOWN INDICATION
     Dosage: 600 MICROGRAM
     Route: 065
  4. OMEPRAZOLE [Concomitant]
     Indication: PRODUCT USED FOR UNKNOWN INDICATION
     Dosage: 20 MILLIGRAM
     Route: 065
  5. OMEPRAZOLE [Concomitant]
     Indication: PARENTERAL NUTRITION
     Route: 065
  6. GABAPENTINE [Concomitant]
     Indication: PRODUCT USED FOR UNKNOWN INDICATION
     Dosage: 300 MILLIGRAM
     Route: 065
  7. LEXOTAN [Concomitant]
     Indication: PRODUCT USED FOR UNKNOWN INDICATION
     Route: 065
  8. GLUCOSE SOLUTION [Concomitant]
     Indication: PARENTERAL NUTRITION
     Dosage: 500 MILLILITER
     Route: 065
  9. FREAMINE [Concomitant]
     Indication: PARENTERAL NUTRITION
     Route: 065
  10. ELECTOLYTIC SOLUTION [Concomitant]
     Indication: FLUID REPLACEMENT
     Route: 065
  11. INTRALIP [Concomitant]
     Indication: PARENTERAL NUTRITION
     Dosage: 250 MILLILITER
     Route: 065
  12. CERNEVIT [Concomitant]
     Indication: PARENTERAL NUTRITION
     Route: 065
  13. LEVETIRACETAM [Concomitant]
     Indication: PARENTERAL NUTRITION
     Route: 065
  14. SOLDESAM [Concomitant]
     Indication: DRUG THERAPY
     Route: 065

REACTIONS (1)
  - Lung adenocarcinoma metastatic [Recovered/Resolved]
